FAERS Safety Report 5414486-7 (Version None)
Quarter: 2007Q3

REPORT INFORMATION
  Report Type: 
  Country: None (occurrence: None)
  Receive Date: 20070713
  Receipt Date: 20070323
  Transmission Date: 20080115
  Serious: Yes (Hospitalization, Other)
  Sender: FDA-Public Use
  Company Number: US-JNJFOC-20070106829

PATIENT
  Age: 24 Year
  Sex: Female
  Weight: 81.6475 kg

DRUGS (3)
  1. ORTHO EVRA [Suspect]
     Indication: CONTRACEPTION
     Dosage: 1 DOSE (S), 3 IN 4 WEEK, TRANSDERMAL; TRANSDERMAL
     Route: 062
     Dates: start: 20030608, end: 20041101
  2. ORTHO EVRA [Suspect]
     Indication: CONTRACEPTION
     Dosage: 1 DOSE (S), 3 IN 4 WEEK, TRANSDERMAL; TRANSDERMAL
     Route: 062
     Dates: start: 20050313, end: 20050628
  3. ALBUTEROL [Concomitant]

REACTIONS (2)
  - DEEP VEIN THROMBOSIS [None]
  - NAUSEA [None]
